FAERS Safety Report 23096319 (Version 1)
Quarter: 2023Q4

REPORT INFORMATION
  Report Type: Report from Study
  Country: IL (occurrence: IL)
  Receive Date: 20231023
  Receipt Date: 20231023
  Transmission Date: 20240110
  Serious: Yes (Death, Other)
  Sender: FDA-Public Use
  Company Number: IL-ABBVIE-5461369

PATIENT
  Age: 74 Year
  Sex: Male

DRUGS (2)
  1. CARBIDOPA\LEVODOPA [Suspect]
     Active Substance: CARBIDOPA\LEVODOPA
     Indication: Parkinson^s disease
     Dosage: MORNING DOSE 11.0ML, CONTINUOUS DOSE 3.5ML/HOUR, EXTRA DOSE 1.5ML
     Route: 050
     Dates: start: 20210426, end: 202310
  2. CARBIDOPA\LEVODOPA [Suspect]
     Active Substance: CARBIDOPA\LEVODOPA

REACTIONS (2)
  - Unevaluable event [Fatal]
  - Coronavirus infection [Unknown]

NARRATIVE: CASE EVENT DATE: 20231001
